FAERS Safety Report 17297265 (Version 1)
Quarter: 2020Q1

REPORT INFORMATION
  Report Type: Spontaneous
  Country: NL (occurrence: NL)
  Receive Date: 20200121
  Receipt Date: 20200121
  Transmission Date: 20200409
  Serious: Yes (Hospitalization)
  Sender: FDA-Public Use
  Company Number: NL-MYLANLABS-2020M1005495

PATIENT
  Age: 51 Year
  Sex: Female
  Weight: 94 kg

DRUGS (5)
  1. LINEZOLID. [Suspect]
     Active Substance: LINEZOLID
     Indication: BACTERIAL INFECTION
     Dosage: 2 X 1/D
     Route: 048
     Dates: start: 20191010
  2. OXAZEPAM. [Concomitant]
     Active Substance: OXAZEPAM
     Dosage: UNK
  3. ZOLPIDEM [Concomitant]
     Active Substance: ZOLPIDEM TARTRATE
     Dosage: UNK
  4. OXYCODON [Concomitant]
     Active Substance: OXYCODONE
     Dosage: UNK
  5. CIPROFLOXACINE                     /00697201/ [Suspect]
     Active Substance: CIPROFLOXACIN
     Indication: BACTERIAL INFECTION
     Dosage: 2X2/D ?
     Route: 048
     Dates: start: 20191010

REACTIONS (6)
  - Rash [Not Recovered/Not Resolved]
  - Insomnia [Not Recovered/Not Resolved]
  - Pruritus [Not Recovered/Not Resolved]
  - Oedema [Not Recovered/Not Resolved]
  - Tooth erosion [Not Recovered/Not Resolved]
  - Diarrhoea [Not Recovered/Not Resolved]

NARRATIVE: CASE EVENT DATE: 20191010
